FAERS Safety Report 10251912 (Version 2)
Quarter: 2014Q2

REPORT INFORMATION
  Report Type: Report from Study
  Country: GB (occurrence: GB)
  Receive Date: 20140623
  Receipt Date: 20140625
  Transmission Date: 20141212
  Serious: Yes (Hospitalization)
  Sender: FDA-Public Use
  Company Number: GB-ACCORD-024289

PATIENT
  Age: 81 Year
  Sex: Male
  Weight: 107 kg

DRUGS (5)
  1. GEMCITABINE/GEMCITABINE HYDROCHLORIDE [Suspect]
     Indication: NON-HODGKIN^S LYMPHOMA
     Route: 042
     Dates: start: 20110902
  2. CISPLATIN [Suspect]
     Indication: NON-HODGKIN^S LYMPHOMA
     Dosage: REGIMEN # 1
     Route: 042
     Dates: start: 20110901
  3. DEXAMETHASONE [Suspect]
     Indication: NON-HODGKIN^S LYMPHOMA
     Route: 048
     Dates: start: 20110901
  4. INOTUZUMAB OZOGAMICIN [Suspect]
     Indication: NON-HODGKIN^S LYMPHOMA
     Dosage: REGIMEN # 1
     Route: 042
     Dates: start: 20110902
  5. RITUXIMAB [Suspect]
     Indication: NON-HODGKIN^S LYMPHOMA
     Dosage: REGIMEN # 1
     Route: 042
     Dates: start: 20110901

REACTIONS (2)
  - Pneumonia [Recovered/Resolved]
  - Neutropenic sepsis [Recovered/Resolved]
